FAERS Safety Report 8453443-3 (Version None)
Quarter: 2012Q2

REPORT INFORMATION
  Report Type: 
  Country: None (occurrence: None)
  Receive Date: 20120620
  Receipt Date: 20120516
  Transmission Date: 20120825
  Serious: No
  Sender: FDA-Public Use
  Company Number: US-VERTEX PHARMACEUTICALS INC.-AE-2012-007378

PATIENT
  Sex: Male
  Weight: 72.186 kg

DRUGS (4)
  1. VICODIN [Concomitant]
     Indication: PAIN
     Route: 048
  2. PEGASYS [Concomitant]
     Indication: HEPATITIS C
     Route: 058
     Dates: start: 20120428
  3. INCIVEK [Suspect]
     Indication: HEPATITIS C
     Route: 048
     Dates: start: 20120428
  4. RIBAVIRIN [Concomitant]
     Indication: HEPATITIS C
     Route: 048
     Dates: start: 20120428

REACTIONS (6)
  - DECREASED APPETITE [None]
  - DYSPEPSIA [None]
  - IRRITABILITY [None]
  - CRYING [None]
  - NAUSEA [None]
  - FATIGUE [None]
